FAERS Safety Report 7991765-0 (Version None)
Quarter: 2011Q4

REPORT INFORMATION
  Report Type: 
  Country: None (occurrence: None)
  Receive Date: 20111219
  Receipt Date: 20111207
  Transmission Date: 20120403
  Serious: Yes (Other)
  Sender: FDA-Public Use
  Company Number: PHEH2011US011087

PATIENT
  Age: 87 Year
  Sex: Female

DRUGS (5)
  1. TEKTURNA HCT [Suspect]
     Dosage: 1 DF, QD
  2. ACETAMINOPHEN [Concomitant]
     Dosage: 4 DF, QD
  3. VITAMINS NOS [Concomitant]
  4. METOPROLOL [Concomitant]
  5. METOLAZONE [Concomitant]

REACTIONS (3)
  - WRIST FRACTURE [None]
  - FALL [None]
  - HUMERUS FRACTURE [None]
